FAERS Safety Report 10561597 (Version 1)
Quarter: 2014Q4

REPORT INFORMATION
  Report Type: Report from Study
  Country: DE (occurrence: DE)
  Receive Date: 20141103
  Receipt Date: 20141103
  Transmission Date: 20150529
  Serious: Yes (Hospitalization)
  Sender: FDA-Public Use
  Company Number: PHHY2014DE139566

PATIENT
  Sex: Female

DRUGS (6)
  1. SPASMEX [Concomitant]
     Active Substance: TROSPIUM CHLORIDE
     Indication: MULTIPLE SCLEROSIS
     Dosage: 45 MG, UNK
     Route: 048
     Dates: start: 20131201, end: 20140301
  2. VITAMIN B12 [Concomitant]
     Active Substance: CYANOCOBALAMIN
     Indication: VITAMIN B12 DEFICIENCY
     Dosage: 1000 IU, UNK
     Route: 030
     Dates: start: 20130109
  3. DEKRISTOL [Concomitant]
     Active Substance: CHOLECALCIFEROL
     Indication: VITAMIN D DEFICIENCY
     Dosage: 20000 IU, UNK
     Route: 048
     Dates: start: 20130109
  4. GILENYA [Suspect]
     Active Substance: FINGOLIMOD HYDROCHLORIDE
     Indication: MULTIPLE SCLEROSIS
     Dosage: 0.5 MG, QD
     Route: 048
     Dates: start: 20130624
  5. FOLIC ACID. [Concomitant]
     Active Substance: FOLIC ACID
     Indication: FOLATE DEFICIENCY
     Dosage: 5 UG, UNK
     Route: 048
     Dates: start: 20130109
  6. MICTONORM UNO [Concomitant]
     Indication: DYSURIA
     Dosage: 30 MG, UNK
     Route: 048
     Dates: start: 20140310

REACTIONS (1)
  - Oophoritis [Not Recovered/Not Resolved]

NARRATIVE: CASE EVENT DATE: 20140922
